FAERS Safety Report 4457554-9 (Version None)
Quarter: 2004Q3

REPORT INFORMATION
  Report Type: 
  Country: None (occurrence: None)
  Receive Date: 20040902
  Receipt Date: 20040408
  Transmission Date: 20050211
  Serious: Yes (Hospitalization)
  Sender: FDA-Public Use
  Company Number: 1581

PATIENT
  Age: 48 Year
  Sex: Female

DRUGS (1)
  1. AVINZA [Suspect]
     Indication: REFLEX SYMPATHETIC DYSTROPHY
     Dosage: 120 MG QD PO
     Route: 048

REACTIONS (2)
  - CHILLS [None]
  - DEHYDRATION [None]
